FAERS Safety Report 5579625-6 (Version None)
Quarter: 2008Q1

REPORT INFORMATION
  Report Type: 
  Country: None (occurrence: None)
  Receive Date: 20080102
  Receipt Date: 20071206
  Transmission Date: 20080703
  Serious: No
  Sender: FDA-Public Use
  Company Number: US-BOEHRINGER INGELHEIM PHARMACEUTICALS, INC.-2007-BP-25895BP

PATIENT
  Sex: Male

DRUGS (5)
  1. COMBIVENT [Suspect]
     Indication: EMPHYSEMA
     Route: 055
     Dates: start: 20070201
  2. ALLOPURINOL [Concomitant]
  3. ATENOLOL [Concomitant]
  4. TRIAMT HCT [Concomitant]
  5. ATACAND [Concomitant]

REACTIONS (1)
  - THERAPEUTIC RESPONSE DECREASED [None]
